FAERS Safety Report 6463464-8 (Version None)
Quarter: 2009Q4

REPORT INFORMATION
  Report Type: 
  Country: None (occurrence: None)
  Receive Date: 20091201
  Receipt Date: 20091019
  Transmission Date: 20100525
  Serious: Yes (Other)
  Sender: FDA-Public Use
  Company Number: US-AMGEN-QUU359311

PATIENT
  Sex: Female
  Weight: 80.8 kg

DRUGS (2)
  1. ENBREL [Suspect]
     Indication: RHEUMATOID ARTHRITIS
     Route: 058
     Dates: start: 20081215, end: 20090201
  2. CLARITIN [Concomitant]
     Route: 048

REACTIONS (2)
  - DEPRESSION [None]
  - RHEUMATOID ARTHRITIS [None]
